FAERS Safety Report 10267666 (Version 1)
Quarter: 2014Q2

REPORT INFORMATION
  Report Type: Spontaneous
  Country: US (occurrence: US)
  Receive Date: 20140630
  Receipt Date: 20140630
  Transmission Date: 20141212
  Serious: No
  Sender: FDA-Public Use
  Company Number: US-PFIZER INC-2014177792

PATIENT
  Age: 62 Year
  Sex: Female
  Weight: 87.98 kg

DRUGS (2)
  1. LYRICA [Suspect]
     Indication: FIBROMYALGIA
     Dosage: UNK
  2. PRILOSEC [Concomitant]
     Dosage: 40 MG, ALTERNATE DAY

REACTIONS (1)
  - Drug ineffective [Unknown]
